FAERS Safety Report 12531456 (Version 2)
Quarter: 2018Q3

REPORT INFORMATION
  Report Type: Spontaneous
  Country: US (occurrence: US)
  Receive Date: 20160706
  Receipt Date: 20180821
  Transmission Date: 20181010
  Serious: Yes (Hospitalization)
  Sender: FDA-Public Use
  Company Number: US-MALLINCKRODT-T201505082

PATIENT
  Age: 58 Year
  Sex: Female
  Weight: 73 kg

DRUGS (8)
  1. XELODA [Suspect]
     Active Substance: CAPECITABINE
     Indication: BREAST CANCER METASTATIC
     Dosage: 500 MG (4 TABLETS)
     Route: 048
     Dates: start: 20150904, end: 20150916
  2. FENTANYL TRANSDERMAL SYSTEM [Suspect]
     Active Substance: FENTANYL
     Dosage: 37.5 ?G, Q72H
     Route: 062
     Dates: start: 20150917
  3. ROXICODONE [Suspect]
     Active Substance: OXYCODONE HYDROCHLORIDE
     Indication: PAIN
     Dosage: 10 MG, UNK
     Route: 048
     Dates: start: 20150910, end: 20150917
  4. XELODA [Suspect]
     Active Substance: CAPECITABINE
     Dosage: UNK
     Dates: start: 20150924
  5. FENTANYL TRANSDERMAL SYSTEM [Suspect]
     Active Substance: FENTANYL
     Indication: PRODUCT USED FOR UNKNOWN INDICATION
     Dosage: UNK
     Route: 062
     Dates: start: 20150910
  6. NAPROXEN. [Suspect]
     Active Substance: NAPROXEN
     Indication: PAIN
     Dosage: 220 MG, UNK
     Route: 048
     Dates: start: 20150910
  7. MORPHINE [Suspect]
     Active Substance: MORPHINE
     Indication: PRODUCT USED FOR UNKNOWN INDICATION
     Dosage: 4 MG, UNK
     Route: 042
     Dates: start: 20150916, end: 201509
  8. MORPHINE [Suspect]
     Active Substance: MORPHINE
     Dosage: 0.5 MG AS NEEDED
     Dates: start: 201509, end: 20150918

REACTIONS (8)
  - Musculoskeletal pain [Unknown]
  - Nausea [Recovered/Resolved]
  - Claustrophobia [Unknown]
  - Hypoxia [Recovered/Resolved]
  - Headache [Recovered/Resolved]
  - Fatigue [Unknown]
  - Hypotension [Recovered/Resolved]
  - Vomiting [Recovered/Resolved]

NARRATIVE: CASE EVENT DATE: 20150914
